FAERS Safety Report 5047028-9 (Version None)
Quarter: 2006Q3

REPORT INFORMATION
  Report Type: 
  Country: None (occurrence: None)
  Receive Date: 20060703
  Receipt Date: 20060622
  Transmission Date: 20061208
  Serious: Yes (Other)
  Sender: FDA-Public Use
  Company Number: 2006078977

PATIENT
  Sex: 0

DRUGS (2)
  1. SERTRALINE [Suspect]
     Indication: ALCOHOLISM
     Dosage: ORAL
     Route: 048
  2. SERTRALINE [Suspect]
     Indication: MAJOR DEPRESSION
     Dosage: ORAL
     Route: 048

REACTIONS (2)
  - GENERAL PHYSICAL HEALTH DETERIORATION [None]
  - SUICIDAL IDEATION [None]
